FAERS Safety Report 21850917 (Version 1)
Quarter: 2023Q1

REPORT INFORMATION
  Report Type: Report from Study
  Country: CA (occurrence: CA)
  Receive Date: 20230111
  Receipt Date: 20230111
  Transmission Date: 20230418
  Serious: Yes (Other)
  Sender: FDA-Public Use
  Company Number: CA-JNJFOC-20230112030

PATIENT
  Age: 74 Year
  Sex: Male

DRUGS (3)
  1. REMICADE [Suspect]
     Active Substance: INFLIXIMAB
     Indication: Product used for unknown indication
     Route: 042
  2. LEUPROLIDE ACETATE [Suspect]
     Active Substance: LEUPROLIDE ACETATE
     Indication: Prostate cancer stage IV
     Route: 065
  3. FINASTERIDE [Suspect]
     Active Substance: FINASTERIDE
     Indication: Prostate cancer stage IV
     Route: 065

REACTIONS (3)
  - Prostate cancer stage IV [Unknown]
  - Weight increased [Unknown]
  - Bone scan abnormal [Unknown]

NARRATIVE: CASE EVENT DATE: 20221201
